FAERS Safety Report 13298251 (Version 1)
Quarter: 2017Q1

REPORT INFORMATION
  Report Type: Spontaneous
  Country: US (occurrence: US)
  Receive Date: 20170306
  Receipt Date: 20170306
  Transmission Date: 20170428
  Serious: No
  Sender: FDA-Public Use
  Company Number: None

PATIENT
  Age: 85 Year
  Sex: Female

DRUGS (2)
  1. SILDENAFIL TAB 20MG [Suspect]
     Active Substance: SILDENAFIL
     Indication: OSTEOPOROSIS
  2. SILDENAFIL TAB 20MG [Suspect]
     Active Substance: SILDENAFIL
     Indication: PULMONARY HYPERTENSION

REACTIONS (1)
  - Pruritus [None]

NARRATIVE: CASE EVENT DATE: 20170306
